FAERS Safety Report 22323047 (Version 2)
Quarter: 2023Q2

REPORT INFORMATION
  Report Type: Report from Study
  Country: US (occurrence: US)
  Receive Date: 20230516
  Receipt Date: 20230522
  Transmission Date: 20230722
  Serious: No
  Sender: FDA-Public Use
  Company Number: US-ABBVIE-4767706

PATIENT
  Age: 62 Year
  Sex: Female
  Weight: 70.76 kg

DRUGS (2)
  1. RINVOQ [Suspect]
     Active Substance: UPADACITINIB
     Indication: Psoriatic arthropathy
     Route: 048
     Dates: start: 20230316, end: 20230513
  2. CELEBREX [Concomitant]
     Active Substance: CELECOXIB
     Indication: Arthritis

REACTIONS (2)
  - Neutropenia [Not Recovered/Not Resolved]
  - Drug ineffective [Not Recovered/Not Resolved]

NARRATIVE: CASE EVENT DATE: 20230508
